FAERS Safety Report 9425868 (Version 8)
Quarter: 2014Q2

REPORT INFORMATION
  Report Type: Spontaneous
  Country: US (occurrence: US)
  Receive Date: 20130729
  Receipt Date: 20140425
  Transmission Date: 20141212
  Serious: Yes (Hospitalization, Other)
  Sender: FDA-Public Use
  Company Number: US-UCBSA-092546

PATIENT
  Age: 25 Year
  Sex: Female
  Weight: 68.03 kg

DRUGS (15)
  1. CIMZIA [Suspect]
     Indication: CROHN^S DISEASE
     Dosage: EXPIRY DATE: ??/MAR/2016
     Dates: start: 20120507
  2. CIMZIA [Suspect]
     Indication: CROHN^S DISEASE
     Dosage: UNKNOWN DOSE
     Dates: end: 20140103
  3. CIMZIA [Suspect]
     Indication: CROHN^S DISEASE
     Route: 058
     Dates: start: 20140205
  4. PREDNISONE [Concomitant]
     Dates: end: 201307
  5. MERCAPTOPURINE [Concomitant]
  6. PRILOSEC [Concomitant]
     Indication: GASTRIC DISORDER
  7. PRILOSEC [Concomitant]
     Indication: GASTRIC DISORDER
  8. PRILOSEC [Concomitant]
     Indication: GASTRIC DISORDER
     Dosage: EVERY MORNING
  9. TYLENOL [Concomitant]
  10. MESALAMINE ENEMAS [Concomitant]
     Indication: INFLAMMATION
     Dosage: HS (AT BED TIME)
     Dates: start: 20131027
  11. MESALAMINE ENEMAS [Concomitant]
     Indication: INFLAMMATION
     Dosage: FREQUENCY INCREASED TO TWICE A DAY
  12. OXYCODONE [Concomitant]
     Indication: PROCEDURAL PAIN
     Dosage: 5MG, 1 TO 2 TABLETS EVERY 4-6HOURS
  13. ZOLOFT [Concomitant]
     Indication: DEPRESSION
     Dosage: 200 MG EVERY MORNING
  14. TRAZEDONE [Concomitant]
     Indication: INSOMNIA
     Dosage: 25 TO 50 MG QHS (AT BED TIME)
  15. VITAMIN D [Concomitant]
     Dosage: EVERY MORNING

REACTIONS (13)
  - Abdominal pain [Recovered/Resolved]
  - Abscess intestinal [Recovered/Resolved]
  - Clostridium difficile infection [Recovered/Resolved]
  - Fungal infection [Not Recovered/Not Resolved]
  - Lymphadenopathy [Recovered/Resolved]
  - Colitis [Recovered/Resolved]
  - Abdominal adhesions [Recovered/Resolved]
  - Hepatic enzyme increased [Recovering/Resolving]
  - Hepatitis [Unknown]
  - Weight decreased [Recovered/Resolved]
  - Incision site pain [Recovered/Resolved]
  - Skin exfoliation [Recovered/Resolved]
  - Stress [Not Recovered/Not Resolved]
